FAERS Safety Report 6886360-0 (Version None)
Quarter: 2010Q3

REPORT INFORMATION
  Report Type: 
  Country: None (occurrence: None)
  Receive Date: 20100729
  Receipt Date: 20080213
  Transmission Date: 20110219
  Serious: Yes (Hospitalization, Other)
  Sender: FDA-Public Use
  Company Number: US-PFIZER INC-2007100821

PATIENT
  Sex: Male

DRUGS (1)
  1. CELEBREX [Suspect]
     Indication: NECK PAIN
     Route: 048
     Dates: start: 20010424

REACTIONS (3)
  - AMNESIA [None]
  - ANXIETY [None]
  - CEREBROVASCULAR ACCIDENT [None]
